FAERS Safety Report 8492130-2 (Version None)
Quarter: 2012Q2

REPORT INFORMATION
  Report Type: 
  Country: None (occurrence: None)
  Receive Date: 20120618
  Receipt Date: 20120517
  Transmission Date: 20120825
  Serious: Yes (Hospitalization)
  Sender: FDA-Public Use
  Company Number: GAM-055-12-AU

PATIENT
  Age: 65 Year
  Sex: Female

DRUGS (9)
  1. PREGABALIN [Concomitant]
  2. DOCUSATE [Concomitant]
  3. FOLIC ACID [Concomitant]
  4. SENNOSIDE A AND SENNOSIDE B [Concomitant]
  5. OCTAGAM [Suspect]
     Indication: CHRONIC INFLAMMATORY DEMYELINATING POLYRADICULONEUROPATHY
     Dosage: 30 G (1X 1/D)
     Route: 042
     Dates: start: 20120402, end: 20120402
  6. PANTOPRAZOLE SODIUM [Concomitant]
  7. PREDNISONE [Concomitant]
  8. OXYCODONE HCL [Concomitant]
  9. ACETAMINOPHEN [Concomitant]

REACTIONS (5)
  - PULMONARY EMBOLISM [None]
  - DIARRHOEA [None]
  - VOMITING [None]
  - PNEUMONIA [None]
  - PULMONARY HYPERTENSION [None]
